FAERS Safety Report 7159558-4 (Version None)
Quarter: 2010Q4

REPORT INFORMATION
  Report Type: 
  Country: None (occurrence: None)
  Receive Date: 20101214
  Receipt Date: 20100921
  Transmission Date: 20110411
  Serious: No
  Sender: FDA-Public Use
  Company Number: US-ASTRAZENECA-2010SE44453

PATIENT
  Age: 85 Year
  Sex: Male

DRUGS (2)
  1. CRESTOR [Suspect]
     Indication: HYPERCHLORAEMIA
     Route: 048
  2. MULTAQ [Concomitant]
     Indication: ARRHYTHMIA

REACTIONS (5)
  - DIZZINESS [None]
  - FALL [None]
  - HUMERUS FRACTURE [None]
  - OEDEMA PERIPHERAL [None]
  - UPPER LIMB FRACTURE [None]
